FAERS Safety Report 12776240 (Version 1)
Quarter: 2016Q3

REPORT INFORMATION
  Report Type: Spontaneous
  Country: PL (occurrence: PL)
  Receive Date: 20160923
  Receipt Date: 20160923
  Transmission Date: 20161109
  Serious: Yes (Death, Hospitalization)
  Sender: FDA-Public Use
  Company Number: PL-KADMON PHARMACEUTICALS, LLC-KAD201609-003452

PATIENT
  Age: 67 Year
  Sex: Male

DRUGS (5)
  1. CARDILOPIN [Concomitant]
     Indication: HYPERTENSION
  2. DOXAN [Concomitant]
     Indication: BENIGN PROSTATIC HYPERPLASIA
  3. EXVIERA [Suspect]
     Active Substance: DASABUVIR
     Indication: HEPATITIS C
     Route: 048
     Dates: start: 20160425, end: 20160718
  4. RIBAVIRIN. [Suspect]
     Active Substance: RIBAVIRIN
     Indication: HEPATITIS C
     Dosage: TABLET
     Route: 048
     Dates: start: 20160425, end: 20160718
  5. VIEKIRAX [Suspect]
     Active Substance: OMBITASVIR\PARITAPREVIR\RITONAVIR
     Indication: HEPATITIS C
     Route: 048
     Dates: start: 20160425, end: 20160718

REACTIONS (4)
  - Hepatocellular carcinoma [Fatal]
  - Ascites [Unknown]
  - Haemoglobin decreased [Unknown]
  - Yellow skin [Unknown]

NARRATIVE: CASE EVENT DATE: 20160718
